FAERS Safety Report 6457508-7 (Version None)
Quarter: 2009Q4

REPORT INFORMATION
  Report Type: 
  Country: None (occurrence: None)
  Receive Date: 20091120
  Receipt Date: 20091105
  Transmission Date: 20100525
  Serious: Yes (Death, Hospitalization)
  Sender: FDA-Public Use
  Company Number: 2009003255

PATIENT
  Age: 55 Year
  Sex: Male

DRUGS (3)
  1. ERLOTINIB HYDROCHLORIDE [Suspect]
     Indication: PANCREATIC CARCINOMA NON-RESECTABLE
     Dosage: 100 MG, QD, ORAL
     Route: 048
     Dates: start: 20081218, end: 20091009
  2. GEMCITABINE [Suspect]
     Indication: PANCREATIC CARCINOMA RESECTABLE
     Dosage: 1900 MG, 1 IN 8 D, INTRAVENOUS
     Route: 042
     Dates: start: 20081218, end: 20091016
  3. PHYTONADIONE [Concomitant]

REACTIONS (6)
  - CHOLANGITIS [None]
  - MALIGNANT NEOPLASM PROGRESSION [None]
  - PANCREATIC CARCINOMA [None]
  - PERITONITIS [None]
  - THROMBOCYTOPENIA [None]
  - WOUND DEHISCENCE [None]
